FAERS Safety Report 10355888 (Version 2)
Quarter: 2014Q3

REPORT INFORMATION
  Report Type: Report from Study
  Country: FR (occurrence: FR)
  Receive Date: 20140801
  Receipt Date: 20140811
  Transmission Date: 20150326
  Serious: Yes (Hospitalization)
  Sender: FDA-Public Use
  Company Number: FR-ROCHE-1441030

PATIENT
  Sex: Male

DRUGS (33)
  1. TOCILIZUMAB [Suspect]
     Active Substance: TOCILIZUMAB
     Route: 041
     Dates: start: 20130205
  2. TOCILIZUMAB [Suspect]
     Active Substance: TOCILIZUMAB
     Dosage: 7.57 MG/KG
     Route: 041
     Dates: start: 20130507
  3. SKENAN [Concomitant]
     Active Substance: MORPHINE SULFATE
     Route: 065
  4. TOCILIZUMAB [Suspect]
     Active Substance: TOCILIZUMAB
     Dosage: 7.18 MG/KG
     Route: 041
     Dates: start: 20130827
  5. TOCILIZUMAB [Suspect]
     Active Substance: TOCILIZUMAB
     Route: 041
     Dates: start: 20120502
  6. DIFFU K [Concomitant]
     Active Substance: POTASSIUM CHLORIDE
     Route: 065
  7. TOCILIZUMAB [Suspect]
     Active Substance: TOCILIZUMAB
     Dosage: 8 MG/KG
     Route: 041
     Dates: start: 20120822
  8. TOCILIZUMAB [Suspect]
     Active Substance: TOCILIZUMAB
     Dosage: 6.86 MG/KG
     Route: 041
     Dates: start: 20121015
  9. TOCILIZUMAB [Suspect]
     Active Substance: TOCILIZUMAB
     Dosage: 6.86 MG/KG
     Route: 041
     Dates: start: 20121112
  10. CALCIDOSE [Concomitant]
     Active Substance: CALCIUM CARBONATE
     Dosage: 500 MG/400 IU 2 DF A DAY
     Route: 065
  11. TOCILIZUMAB [Suspect]
     Active Substance: TOCILIZUMAB
     Dosage: 7.41 MG/KG
     Route: 041
     Dates: start: 20130604
  12. TOCILIZUMAB [Suspect]
     Active Substance: TOCILIZUMAB
     Dosage: 6.96 MG/KG
     Route: 041
     Dates: start: 20120724
  13. TOCILIZUMAB [Suspect]
     Active Substance: TOCILIZUMAB
     Dosage: 7.67 MG/KG
     Route: 041
     Dates: start: 20130108
  14. ETANERCEPT [Concomitant]
     Active Substance: ETANERCEPT
     Route: 065
     Dates: start: 20090212, end: 201201
  15. DOLIPRANE [Concomitant]
     Active Substance: ACETAMINOPHEN
     Dosage: IF NECESSARY
     Route: 065
  16. CYMBALTA [Concomitant]
     Active Substance: DULOXETINE HYDROCHLORIDE
     Route: 065
  17. CORTISONE [Concomitant]
     Active Substance: CORTISONE\HYDROCORTISONE
  18. TOCILIZUMAB [Suspect]
     Active Substance: TOCILIZUMAB
     Indication: RHEUMATOID ARTHRITIS
     Dosage: 7.16 MG/KG
     Route: 041
     Dates: start: 20120402
  19. TOCILIZUMAB [Suspect]
     Active Substance: TOCILIZUMAB
     Dosage: 8 MG/KG
     Route: 041
     Dates: start: 20120918
  20. TOCILIZUMAB [Suspect]
     Active Substance: TOCILIZUMAB
     Dosage: 7.78 MG/KG
     Route: 041
     Dates: start: 20130410
  21. CORTANCYL [Concomitant]
     Active Substance: PREDNISONE
     Route: 065
  22. CORTANCYL [Concomitant]
     Active Substance: PREDNISONE
     Route: 065
  23. INEXIUM [Concomitant]
     Active Substance: ESOMEPRAZOLE
     Route: 065
  24. NAPROSYN [Concomitant]
     Active Substance: NAPROXEN
     Dosage: IF NECESSARY
     Route: 065
  25. ACTISKENAN [Concomitant]
     Active Substance: MORPHINE SULFATE
     Dosage: IF NECESSARY
     Route: 065
  26. TOCILIZUMAB [Suspect]
     Active Substance: TOCILIZUMAB
     Dosage: 7.80 MG/KG
     Route: 041
     Dates: start: 20121211
  27. TOCILIZUMAB [Suspect]
     Active Substance: TOCILIZUMAB
     Dosage: 7.18 MG/KG
     Route: 041
     Dates: start: 20130702
  28. TOCILIZUMAB [Suspect]
     Active Substance: TOCILIZUMAB
     Dosage: 7.18 MG/KG
     Route: 041
     Dates: start: 20130730
  29. LYRICA [Concomitant]
     Active Substance: PREGABALIN
     Dosage: 3  DF A DAY
     Route: 065
  30. RIVOTRIL [Concomitant]
     Active Substance: CLONAZEPAM
     Dosage: 8 DROPS A DAY
     Route: 065
  31. FUMAFER [Concomitant]
     Active Substance: FERROUS FUMARATE
     Dosage: 2 DF
     Route: 065
  32. TOCILIZUMAB [Suspect]
     Active Substance: TOCILIZUMAB
     Dosage: 7.16 MG/KG
     Route: 041
     Dates: start: 20120402
  33. TOCILIZUMAB [Suspect]
     Active Substance: TOCILIZUMAB
     Dosage: 7.67 MG/KG
     Route: 041
     Dates: start: 20130314

REACTIONS (4)
  - Fungal infection [Unknown]
  - Onychomycosis [Unknown]
  - Arthritis [Recovered/Resolved]
  - Rheumatoid arthritis [Not Recovered/Not Resolved]

NARRATIVE: CASE EVENT DATE: 201206
